FAERS Safety Report 20393107 (Version 1)
Quarter: 2022Q1

REPORT INFORMATION
  Report Type: Report from Study
  Country: CA (occurrence: CA)
  Receive Date: 20220128
  Receipt Date: 20220128
  Transmission Date: 20220423
  Serious: Yes (Hospitalization)
  Sender: FDA-Public Use
  Company Number: CA-JNJFOC-20211234089

PATIENT
  Age: 83 Year
  Sex: Female
  Weight: 69 kg

DRUGS (1)
  1. REMICADE [Suspect]
     Active Substance: INFLIXIMAB
     Indication: Sarcoidosis
     Route: 042
     Dates: start: 20210923

REACTIONS (5)
  - Disorientation [Unknown]
  - Asthenia [Unknown]
  - Localised infection [Unknown]
  - Cystitis [Unknown]
  - Sepsis [Unknown]

NARRATIVE: CASE EVENT DATE: 20211214
